FAERS Safety Report 20674206 (Version 1)
Quarter: 2022Q2

REPORT INFORMATION
  Report Type: Report from Study
  Country: PL (occurrence: PL)
  Receive Date: 20220405
  Receipt Date: 20220405
  Transmission Date: 20220721
  Serious: Yes (Other)
  Sender: FDA-Public Use
  Company Number: PL-AMGEN-POLNI2022056593

PATIENT
  Age: 64 Year
  Sex: Female

DRUGS (15)
  1. AMG-510 [Suspect]
     Active Substance: AMG-510
     Indication: Non-small cell lung cancer metastatic
     Dosage: UNK
     Route: 065
     Dates: start: 20211005, end: 20220209
  2. ZIEXTENZO [Concomitant]
     Active Substance: PEGFILGRASTIM-BMEZ
  3. SOTALOL [Concomitant]
     Active Substance: SOTALOL
  4. ISOSORBIDE MONONITRATE [Concomitant]
     Active Substance: ISOSORBIDE MONONITRATE
  5. VALSARTAN [Concomitant]
     Active Substance: VALSARTAN
  6. POTASSIUM CHLORIDE [Concomitant]
     Active Substance: POTASSIUM CHLORIDE
  7. PANTOPRAZOLE SODIUM [Concomitant]
     Active Substance: PANTOPRAZOLE SODIUM
  8. PLAVIX [Concomitant]
     Active Substance: CLOPIDOGREL BISULFATE
  9. ALLOPURINOL [Concomitant]
     Active Substance: ALLOPURINOL
  10. HEPAREGEN [Concomitant]
  11. ESSENTIAL FORTE N [Concomitant]
  12. METIZOL [METRONIDAZOLE] [Concomitant]
  13. PREDNISONE [Concomitant]
     Active Substance: PREDNISONE
  14. NALOXONE HYDROCHLORIDE\OXYCODONE HYDROCHLORIDE [Concomitant]
     Active Substance: NALOXONE HYDROCHLORIDE\OXYCODONE HYDROCHLORIDE
  15. VITRUM CALCIUM [Concomitant]

REACTIONS (1)
  - Non-small cell lung cancer [Unknown]
